FAERS Safety Report 6510361-5 (Version None)
Quarter: 2009Q4

REPORT INFORMATION
  Report Type: 
  Country: None (occurrence: None)
  Receive Date: 20091222
  Receipt Date: 20091008
  Transmission Date: 20100525
  Serious: No
  Sender: FDA-Public Use
  Company Number: US-ASTRAZENECA-2009SE18909

PATIENT
  Sex: Female
  Weight: 46.3 kg

DRUGS (8)
  1. CRESTOR [Suspect]
     Indication: BLOOD CHOLESTEROL INCREASED
     Route: 048
  2. METFORMIN HCL [Concomitant]
     Indication: DIABETES MELLITUS
  3. RAMIPRIL [Concomitant]
  4. GLIPIZIDE [Concomitant]
     Indication: DIABETES MELLITUS
  5. BABY ASPIRIN [Concomitant]
  6. SYNTHROID [Concomitant]
  7. VITAMIN D [Concomitant]
  8. TEMAZEPAM [Concomitant]
     Indication: SLEEP DISORDER

REACTIONS (1)
  - WEIGHT DECREASED [None]
